FAERS Safety Report 20318032 (Version 1)
Quarter: 2022Q1

REPORT INFORMATION
  Report Type: Spontaneous
  Country: US (occurrence: None)
  Receive Date: 20220108
  Receipt Date: 20220108
  Transmission Date: 20220423
  Serious: Yes (unspecified)
  Sender: FDA-Public Use
  Company Number: None

PATIENT
  Age: 61 Year
  Sex: Male
  Weight: 111.6 kg

DRUGS (1)
  1. CONTRAVE [Suspect]
     Active Substance: BUPROPION HYDROCHLORIDE\NALTREXONE HYDROCHLORIDE
     Indication: Weight control
     Dosage: FREQUENCY : TWICE A DAY;?
     Route: 048
     Dates: end: 20220104

REACTIONS (3)
  - Pruritus [None]
  - Urticaria [None]
  - Scrotal swelling [None]

NARRATIVE: CASE EVENT DATE: 20210103
